FAERS Safety Report 5641062-3 (Version None)
Quarter: 2008Q1

REPORT INFORMATION
  Report Type: 
  Country: None (occurrence: None)
  Receive Date: 20080227
  Receipt Date: 20080220
  Transmission Date: 20080703
  Serious: Yes (Hospitalization)
  Sender: FDA-Public Use
  Company Number: US-ASTRAZENECA-2006UW09112

PATIENT
  Age: 15050 Day
  Sex: Female
  Weight: 72.7 kg

DRUGS (7)
  1. SEROQUEL [Suspect]
     Indication: SLEEP DISORDER
     Route: 048
     Dates: start: 20030801, end: 20040901
  2. PAXIL [Concomitant]
     Dates: start: 20010501
  3. DEPO-ESTRADIOL [Concomitant]
  4. LISINOPRIL [Concomitant]
  5. PERCOCET [Concomitant]
  6. HYDROCODONE BITARTRATE [Concomitant]
  7. VICODIN [Concomitant]

REACTIONS (5)
  - ALOPECIA [None]
  - DEHYDRATION [None]
  - MUSCULOSKELETAL PAIN [None]
  - OBESITY [None]
  - TYPE 2 DIABETES MELLITUS [None]
